FAERS Safety Report 14845800 (Version 1)
Quarter: 2018Q2

REPORT INFORMATION
  Report Type: Spontaneous
  Country: FR (occurrence: FR)
  Receive Date: 20180504
  Receipt Date: 20180504
  Transmission Date: 20180711
  Serious: Yes (Other)
  Sender: FDA-Public Use
  Company Number: FR-MERCK KGAA-2047158

PATIENT
  Age: 39 Year
  Sex: Female

DRUGS (1)
  1. NOVOTHYROX [Suspect]
     Active Substance: LEVOTHYROXINE SODIUM
     Indication: PRODUCT USED FOR UNKNOWN INDICATION

REACTIONS (20)
  - Iron deficiency anaemia [Not Recovered/Not Resolved]
  - Libido decreased [None]
  - Psoriatic arthropathy [None]
  - Decreased interest [None]
  - Bone pain [None]
  - Negative thoughts [None]
  - Hyperhidrosis [None]
  - Poor quality sleep [None]
  - Maternal exposure during pregnancy [Recovered/Resolved]
  - Fatigue [Not Recovered/Not Resolved]
  - Red blood cell count increased [None]
  - Headache [None]
  - Stress [None]
  - Somnolence [None]
  - Myalgia [None]
  - Mood altered [None]
  - Live birth [Recovered/Resolved]
  - Leukocytosis [None]
  - Apathy [None]
  - Social avoidant behaviour [None]

NARRATIVE: CASE EVENT DATE: 20170826
